FAERS Safety Report 4347534-6 (Version None)
Quarter: 2004Q2

REPORT INFORMATION
  Report Type: 
  Country: None (occurrence: None)
  Receive Date: 20040422
  Receipt Date: 20040412
  Transmission Date: 20050107
  Serious: Yes (Other)
  Sender: FDA-Public Use
  Company Number: US-JNJFOC-20030805673

PATIENT
  Age: 82 Year
  Sex: Female
  Weight: 51.2565 kg

DRUGS (13)
  1. REMICADE [Suspect]
     Indication: RHEUMATOID ARTHRITIS
     Dosage: SEE IMAGE
     Route: 042
     Dates: start: 20030613, end: 20030613
  2. REMICADE [Suspect]
     Indication: RHEUMATOID ARTHRITIS
     Dosage: SEE IMAGE
     Route: 042
     Dates: start: 20000501
  3. METHOTREXATE SODIUM [Concomitant]
  4. FOLIC ACID [Concomitant]
  5. IRON (IRON) [Concomitant]
  6. CALCIUM (CALCIUM) [Concomitant]
  7. NORVASC [Concomitant]
  8. VITAMIN D (ERGOCALCIFERON) [Concomitant]
  9. TYLENOL [Concomitant]
  10. FOSAMAX [Concomitant]
  11. PROVERA [Concomitant]
  12. ESTRADERM [Concomitant]
  13. CENTRUM SILVER (CENTRUM SILVER) [Concomitant]

REACTIONS (1)
  - CUTANEOUS LUPUS ERYTHEMATOSUS [None]
